FAERS Safety Report 6057292-5 (Version None)
Quarter: 2009Q1

REPORT INFORMATION
  Report Type: 
  Country: None (occurrence: None)
  Receive Date: 20090129
  Receipt Date: 20080808
  Transmission Date: 20090719
  Serious: No
  Sender: FDA-Public Use
  Company Number: A0741786A

PATIENT
  Age: 28 Year
  Sex: Female

DRUGS (2)
  1. BUPROPION HYDROCHLORIDE [Suspect]
     Indication: DEPRESSION
     Route: 048
     Dates: start: 20030101, end: 20030101
  2. NO CONCURRENT MEDICATION [Concomitant]

REACTIONS (2)
  - ABNORMAL DREAMS [None]
  - INSOMNIA [None]
